FAERS Safety Report 7051696-X (Version None)
Quarter: 2010Q4

REPORT INFORMATION
  Report Type: 
  Country: None (occurrence: None)
  Receive Date: 20101019
  Receipt Date: 20101013
  Transmission Date: 20110411
  Serious: Yes (Other)
  Sender: FDA-Public Use
  Company Number: DE-SANOFI-AVENTIS-2010SA062820

PATIENT
  Age: 69 Year
  Sex: Male
  Weight: 106 kg

DRUGS (8)
  1. OXALIPLATIN [Suspect]
     Route: 041
     Dates: start: 20090306, end: 20090306
  2. OXALIPLATIN [Suspect]
     Route: 041
     Dates: start: 20100910, end: 20100910
  3. BEVACIZUMAB [Suspect]
     Route: 041
     Dates: start: 20090306, end: 20090306
  4. BEVACIZUMAB [Suspect]
     Route: 041
     Dates: start: 20101001, end: 20101001
  5. CAPECITABINE [Suspect]
     Route: 048
     Dates: start: 20090306, end: 20090319
  6. CAPECITABINE [Suspect]
     Route: 048
     Dates: start: 20100901, end: 20100924
  7. IMATINIB [Suspect]
     Route: 048
     Dates: start: 20090306, end: 20090319
  8. IMATINIB [Suspect]
     Route: 048
     Dates: start: 20100901, end: 20100915

REACTIONS (1)
  - PANCREATIC CARCINOMA [None]
